FAERS Safety Report 8223378-X (Version None)
Quarter: 2012Q1

REPORT INFORMATION
  Report Type: 
  Country: None (occurrence: None)
  Receive Date: 20120312
  Receipt Date: 20120305
  Transmission Date: 20120608
  Serious: Yes (Other)
  Sender: FDA-Public Use
  Company Number: WAES 1203DEU00019

PATIENT
  Age: 51 Year
  Sex: Male

DRUGS (9)
  1. RAMIPRIL [Concomitant]
  2. EZETIMIBE [Concomitant]
  3. PRAVASTATIN SODIUM [Concomitant]
  4. BISOPROLOL FUMARATE [Concomitant]
  5. METRONIDAZOLE [Concomitant]
  6. ISENTRESS [Suspect]
     Indication: HIV INFECTION
     Dosage: 400 MG/BID/PO
     Route: 048
     Dates: start: 20100907
  7. ABACAVIR SULFATE/LAMIVUDINE [Concomitant]
  8. EMTRICITABINE + TENOFOVIR DISOPROXIL FUM [Concomitant]
  9. BETAMETHASONE VALERATE (+) FUSIDIC ACID [Concomitant]

REACTIONS (1)
  - HYPERTRIGLYCERIDAEMIA [None]
